FAERS Safety Report 24084928 (Version 1)
Quarter: 2024Q3

REPORT INFORMATION
  Report Type: Spontaneous
  Country: CA (occurrence: CA)
  Receive Date: 20240712
  Receipt Date: 20240712
  Transmission Date: 20241016
  Serious: Yes (Other)
  Sender: FRESENIUS KABI
  Company Number: CA-FreseniusKabi-FK202410878

PATIENT
  Age: 50 Year
  Sex: Male

DRUGS (7)
  1. FOLIC ACID [Suspect]
     Active Substance: FOLIC ACID
     Indication: Product used for unknown indication
     Dosage: DOSAGE FORM: NOT SPECIFIED
  2. ASCORBIC ACID [Suspect]
     Active Substance: ASCORBIC ACID
     Indication: Product used for unknown indication
     Dosage: DOSAGE FORM: NOT SPECIFIED
  3. OLANZAPINE [Suspect]
     Active Substance: OLANZAPINE
     Indication: Product used for unknown indication
     Dosage: DOSAGE FORM: NOT SPECIFIED
  4. ONDANSETRON [Suspect]
     Active Substance: ONDANSETRON
     Indication: Product used for unknown indication
     Dosage: DOSAGE FORM: NOT SPECIFIED
  5. PREDNISONE [Suspect]
     Active Substance: PREDNISONE
     Indication: Product used for unknown indication
     Dosage: DOSAGE FORM: NOT SPECIFIED
  6. PANTOPRAZOLE SODIUM ANHYDROUS [Suspect]
     Active Substance: PANTOPRAZOLE SODIUM ANHYDROUS
     Indication: Product used for unknown indication
     Dosage: DOSAGE FORM: NOT SPECIFIED?ROA: UNKNOWN
  7. DEXAMETHASONE [Suspect]
     Active Substance: DEXAMETHASONE
     Indication: Product used for unknown indication
     Dosage: DOSAGE FORM: NOT SPECIFIED?ROA: UNKNOWN

REACTIONS (1)
  - Febrile neutropenia [Unknown]
